FAERS Safety Report 7705207-3 (Version None)
Quarter: 2011Q3

REPORT INFORMATION
  Report Type: 
  Country: None (occurrence: None)
  Receive Date: 20110824
  Receipt Date: 20110816
  Transmission Date: 20111222
  Serious: Yes (Death, Hospitalization, Disabling)
  Sender: FDA-Public Use
  Company Number: JP-JNJFOC-20100400199

PATIENT
  Sex: Female
  Weight: 37 kg

DRUGS (23)
  1. DOXORUBICIN HYDROCHLORIDE [Suspect]
     Dosage: CYCLE 2
     Route: 042
     Dates: start: 20090915, end: 20090915
  2. ZOSYN [Suspect]
     Route: 042
     Dates: start: 20091010, end: 20091013
  3. DECADRON [Concomitant]
     Indication: PROPHYLAXIS
     Route: 048
     Dates: start: 20080818, end: 20090917
  4. PURSENNID [Concomitant]
     Route: 048
  5. SANDOSTATIN [Concomitant]
     Indication: GASTROINTESTINAL INFECTION
     Route: 042
     Dates: start: 20091023
  6. ZOSYN [Suspect]
     Indication: FEBRILE NEUTROPENIA
     Route: 042
     Dates: start: 20091021, end: 20091109
  7. CEFOPERAZONE SODIUM [Concomitant]
     Indication: GASTROINTESTINAL INFECTION
     Dates: start: 20091019, end: 20091021
  8. MAGNESIUM OXIDE [Concomitant]
     Route: 048
     Dates: end: 20090915
  9. DAI-KENCHU-TO [Concomitant]
     Route: 048
     Dates: end: 20090920
  10. CLAFORAN [Concomitant]
     Indication: GASTROINTESTINAL INFECTION
     Route: 042
     Dates: start: 20090922, end: 20090928
  11. CLOBETASOL PROPIONATE [Concomitant]
     Indication: TOXIC SKIN ERUPTION
     Dosage: 2-3 G
     Route: 061
     Dates: start: 20091014
  12. ZOSYN [Suspect]
     Route: 042
     Dates: start: 20090929, end: 20090930
  13. LECICARBON [Concomitant]
     Route: 054
  14. GASCON [Concomitant]
     Route: 048
     Dates: start: 20090919, end: 20090925
  15. BIOFERMIN [Concomitant]
     Indication: GASTROINTESTINAL INFECTION
     Route: 048
     Dates: start: 20090922, end: 20090925
  16. DECADRON [Concomitant]
     Route: 042
     Dates: start: 20080818, end: 20090915
  17. DOXORUBICIN HYDROCHLORIDE [Suspect]
     Indication: OVARIAN CANCER RECURRENT
     Dosage: CYCLE 1
     Route: 042
     Dates: start: 20090818, end: 20090818
  18. ZOSYN [Suspect]
     Indication: GASTROINTESTINAL INFECTION
     Route: 042
     Dates: start: 20091021, end: 20091109
  19. ZOSYN [Suspect]
     Route: 042
     Dates: start: 20091010, end: 20091013
  20. LACTOMIN [Concomitant]
     Indication: GASTROINTESTINAL INFECTION
     Dates: start: 20090922, end: 20090925
  21. DIPHENHYDRAMINE HCL [Concomitant]
     Indication: TOXIC SKIN ERUPTION
     Dosage: 2-3 G AS SITUATION DEMANDS
     Route: 061
     Dates: start: 20091010
  22. SEROTONE [Concomitant]
     Indication: PROPHYLAXIS
     Route: 042
     Dates: start: 20090818, end: 20090915
  23. ZOSYN [Suspect]
     Route: 042
     Dates: start: 20090929, end: 20090930

REACTIONS (5)
  - WHITE BLOOD CELL COUNT DECREASED [None]
  - FEBRILE NEUTROPENIA [None]
  - ILEUS [None]
  - GASTROINTESTINAL INFECTION [None]
  - OVARIAN CANCER [None]
